FAERS Safety Report 8049390-1 (Version None)
Quarter: 2012Q1

REPORT INFORMATION
  Report Type: 
  Country: None (occurrence: None)
  Receive Date: 20120117
  Receipt Date: 20120112
  Transmission Date: 20120608
  Serious: Yes (Life-Threatening, Hospitalization)
  Sender: FDA-Public Use
  Company Number: SE-ROCHE-1030734

PATIENT
  Sex: Female

DRUGS (8)
  1. PREDNISOLONE [Concomitant]
  2. INNOVAR [Concomitant]
  3. SINGULAIR [Concomitant]
  4. VENTOLIN [Concomitant]
  5. CALCIUM CARBONATE [Concomitant]
  6. CETIRIZINE [Concomitant]
  7. TEOVENT (SWEDEN) [Concomitant]
  8. XOLAIR [Suspect]
     Indication: ASTHMA
     Route: 058
     Dates: start: 20100922, end: 20111026

REACTIONS (2)
  - ASTHMA [None]
  - HYPERSENSITIVITY [None]
